FAERS Safety Report 9119461 (Version 2)
Quarter: 2013Q2

REPORT INFORMATION
  Report Type: Spontaneous
  Country: US (occurrence: US)
  Receive Date: 20130226
  Receipt Date: 20130529
  Transmission Date: 20140414
  Serious: Yes (Other)
  Sender: FDA-Public Use
  Company Number: US-BAYER-2013-024477

PATIENT
  Age: 28 Year
  Sex: Female

DRUGS (2)
  1. MIRENA [Suspect]
     Indication: CONTRACEPTION
     Dosage: 20 MCG/24HR, CONT
     Route: 015
     Dates: start: 20110930
  2. MIRENA [Suspect]
     Indication: DYSFUNCTIONAL UTERINE BLEEDING

REACTIONS (3)
  - Device dislocation [None]
  - Pregnancy with contraceptive device [None]
  - Drug ineffective [None]
